APPROVED DRUG PRODUCT: FENOFIBRATE
Active Ingredient: FENOFIBRATE
Strength: 48MG
Dosage Form/Route: TABLET;ORAL
Application: A211122 | Product #001 | TE Code: AB
Applicant: RISING PHARMA HOLDINGS INC
Approved: Mar 18, 2020 | RLD: No | RS: No | Type: RX